FAERS Safety Report 4519768-9 (Version None)
Quarter: 2004Q4

REPORT INFORMATION
  Report Type: 
  Country: None (occurrence: None)
  Receive Date: 20041203
  Receipt Date: 20041203
  Transmission Date: 20050328
  Serious: Yes (Other)
  Sender: FDA-Public Use
  Company Number: None

PATIENT
  Age: 40 Year
  Sex: Female
  Weight: 72.5755 kg

DRUGS (7)
  1. LISINOPRIL AND HYDROCHLOROTHIAZIDE [Suspect]
     Indication: HYPERTENSION
     Dosage: 1 TABLET DAILY BY MOUTH
     Dates: start: 20040116
  2. . [Concomitant]
     Indication: OEDEMA
  3. NIFEDIPINE [Concomitant]
  4. LIPITOR [Concomitant]
  5. ZYRTEC [Concomitant]
  6. NAPROXEN SODIUM [Concomitant]
  7. ALBUTEROL [Concomitant]

REACTIONS (2)
  - OEDEMA [None]
  - PHARMACEUTICAL PRODUCT COMPLAINT [None]
